FAERS Safety Report 7238146-5 (Version None)
Quarter: 2011Q1

REPORT INFORMATION
  Report Type: 
  Country: None (occurrence: None)
  Receive Date: 20110119
  Receipt Date: 20110119
  Transmission Date: 20110831
  Serious: Yes (Other)
  Sender: FDA-Public Use
  Company Number: None

PATIENT
  Age: 63 Year
  Sex: Male
  Weight: 82.5 kg

DRUGS (2)
  1. PRASUGREL [Suspect]
     Indication: CORONARY ARTERIAL STENT INSERTION
     Dosage: 60 MG ONCE PO
     Route: 048
     Dates: start: 20101010, end: 20101010
  2. EPTIFIBATIDE [Suspect]
     Indication: CORONARY ARTERIAL STENT INSERTION
     Dosage: PER HOUR IV
     Route: 042
     Dates: start: 20101010, end: 20101012

REACTIONS (7)
  - HAEMOGLOBIN DECREASED [None]
  - HEPARIN-INDUCED THROMBOCYTOPENIA [None]
  - HYPOCOAGULABLE STATE [None]
  - HAEMATOMA [None]
  - THROMBOSIS IN DEVICE [None]
  - THROMBOCYTOPENIA [None]
  - DRUG INEFFECTIVE [None]
